FAERS Safety Report 4324596-3 (Version None)
Quarter: 2004Q1

REPORT INFORMATION
  Report Type: 
  Country: None (occurrence: None)
  Receive Date: 20040326
  Receipt Date: 20040320
  Transmission Date: 20041129
  Serious: Yes (Life-Threatening, Hospitalization)
  Sender: FDA-Public Use
  Company Number: PHNU2004DE01308

PATIENT
  Sex: Female

DRUGS (1)
  1. GLEEVEC [Suspect]
     Indication: GASTROINTESTINAL STROMAL TUMOUR
     Dosage: 400MG/DAY
     Dates: start: 20040101, end: 20040318

REACTIONS (7)
  - COMPUTERISED TOMOGRAM ABNORMAL [None]
  - CONDITION AGGRAVATED [None]
  - GENERAL PHYSICAL CONDITION ABNORMAL [None]
  - INTERSTITIAL LUNG DISEASE [None]
  - LIFE SUPPORT [None]
  - PNEUMOCYSTIS CARINII INFECTION [None]
  - RESPIRATORY FAILURE [None]
